FAERS Safety Report 8530646-0 (Version None)
Quarter: 2012Q3

REPORT INFORMATION
  Report Type: 
  Country: None (occurrence: None)
  Receive Date: 20120723
  Receipt Date: 20120716
  Transmission Date: 20120928
  Serious: Yes (Other)
  Sender: FDA-Public Use
  Company Number: FR-ROCHE-1020653

PATIENT
  Sex: Male
  Weight: 88 kg

DRUGS (17)
  1. FLUDARABINE PHOSPHATE [Concomitant]
     Indication: B-CELL LYMPHOMA
     Route: 042
     Dates: start: 20110330, end: 20110427
  2. BISOPROLOL FUMARATE [Concomitant]
  3. PREVISCAN [Concomitant]
  4. DOXORUBICIN HYDROCHLORIDE [Concomitant]
     Dates: start: 20110302
  5. CYCLOPHOSPHAMIDE [Concomitant]
     Indication: B-CELL LYMPHOMA
     Dates: start: 20110209, end: 20110302
  6. MABTHERA [Suspect]
     Dates: start: 20110209, end: 20110302
  7. RAMIPRIL [Concomitant]
  8. CISPLATIN [Concomitant]
     Dosage: 3 CYCLES
     Dates: start: 20110122
  9. MABTHERA [Suspect]
     Indication: B-CELL LYMPHOMA
     Dates: start: 20080618, end: 20080708
  10. CARBOPLATIN [Concomitant]
     Dosage: 4 CYCLES
     Dates: start: 20120118
  11. VINCRISTINE [Concomitant]
     Indication: B-CELL LYMPHOMA
     Route: 042
     Dates: start: 20110209, end: 20110302
  12. CARBOPLATIN [Concomitant]
     Dates: start: 20120118
  13. MABTHERA [Suspect]
     Dates: start: 20110330, end: 20110427
  14. DOXORUBICIN HYDROCHLORIDE [Concomitant]
     Indication: B-CELL LYMPHOMA
     Route: 042
     Dates: start: 20110209, end: 20110302
  15. CYCLOPHOSPHAMIDE [Concomitant]
     Route: 042
     Dates: start: 20110330, end: 20110427
  16. CISPLATIN [Concomitant]
     Dosage: 3 CYCLES
     Dates: start: 20110122
  17. FLUOROURACIL [Concomitant]
     Dosage: 3 CYCLES
     Dates: start: 20110122

REACTIONS (1)
  - SQUAMOUS CELL CARCINOMA [None]
